FAERS Safety Report 4734097-6 (Version None)
Quarter: 2005Q3

REPORT INFORMATION
  Report Type: 
  Country: None (occurrence: None)
  Receive Date: 20050804
  Receipt Date: 20050726
  Transmission Date: 20060218
  Serious: No
  Sender: FDA-Public Use
  Company Number: MX-BOEHRINGER INGELHEIM PHARMACEUTICALS, INC.-2005-BP-12712MX

PATIENT
  Age: 66 Year
  Sex: Male

DRUGS (1)
  1. SECOTEX CAPSULES 0.4MG [Suspect]
     Indication: PROSTATISM
     Route: 048
     Dates: start: 20050213, end: 20050401

REACTIONS (1)
  - PROSTATE CANCER [None]
